FAERS Safety Report 8984715 (Version 1)
Quarter: 2012Q4

REPORT INFORMATION
  Report Type: Spontaneous
  Country: DE (occurrence: None)
  Receive Date: 20121217
  Receipt Date: 20121217
  Transmission Date: 20130627
  Serious: Yes (Other)
  Sender: FDA-Public Use
  Company Number: GER/GER/12/0027023

PATIENT
  Age: 39 Year
  Sex: Female

DRUGS (4)
  1. VENLAFAXINE [Suspect]
     Indication: DEPRESSION
     Route: 048
     Dates: start: 20110504, end: 20120118
  2. DICLOFENAC [Suspect]
     Indication: HEADACHE
     Route: 048
  3. HYPNOREX (LITHIUM CARBONATE) [Concomitant]
  4. DOPEGYT (METHYLDOPA) [Concomitant]

REACTIONS (5)
  - Gestational diabetes [None]
  - Pre-eclampsia [None]
  - Polyhydramnios [None]
  - Caesarean section [None]
  - Exposure during pregnancy [None]
